FAERS Safety Report 4875743-6 (Version None)
Quarter: 2006Q1

REPORT INFORMATION
  Report Type: 
  Country: None (occurrence: None)
  Receive Date: 20060105
  Receipt Date: 20051229
  Transmission Date: 20060701
  Serious: Yes (Hospitalization, Other)
  Sender: FDA-Public Use
  Company Number: GBWYE268729DEC05

PATIENT
  Age: 60 Year
  Sex: Male

DRUGS (3)
  1. IBUPROFEN [Suspect]
     Dosage: OVERDOSE OF 20 X 400MG TABLETS
  2. GLYBURIDE [Suspect]
     Dosage: OVERDOSE OF 20 DOSES X 5MG ONCE
  3. METFORMIN HCL [Suspect]
     Dosage: OVERDOSE OF 100 X 500MG TABLETS

REACTIONS (13)
  - ABDOMINAL PAIN [None]
  - AGITATION [None]
  - APNOEA [None]
  - BACK PAIN [None]
  - LACTIC ACIDOSIS [None]
  - METABOLIC ACIDOSIS [None]
  - MULTIPLE DRUG OVERDOSE [None]
  - SOMNOLENCE [None]
  - TACHYPNOEA [None]
  - THERAPY NON-RESPONDER [None]
  - VASCULAR RESISTANCE SYSTEMIC DECREASED [None]
  - VENTRICULAR FIBRILLATION [None]
  - VOMITING [None]
